FAERS Safety Report 8341899-6 (Version None)
Quarter: 2012Q2

REPORT INFORMATION
  Report Type: 
  Country: None (occurrence: None)
  Receive Date: 20120507
  Receipt Date: 20120425
  Transmission Date: 20120825
  Serious: Yes (Other)
  Sender: FDA-Public Use
  Company Number: IT-BRISTOL-MYERS SQUIBB COMPANY-16559858

PATIENT
  Sex: Male

DRUGS (2)
  1. DOCETAXEL [Suspect]
     Indication: PENILE MALIGNANT NEOPLASM
  2. ERBITUX [Suspect]
     Indication: PENILE MALIGNANT NEOPLASM

REACTIONS (3)
  - MUCOSAL INFLAMMATION [None]
  - NECROSIS [None]
  - SKIN TOXICITY [None]
